FAERS Safety Report 7586612-5 (Version None)
Quarter: 2011Q3

REPORT INFORMATION
  Report Type: 
  Country: None (occurrence: None)
  Receive Date: 20110701
  Receipt Date: 20110624
  Transmission Date: 20111222
  Serious: Yes (Other)
  Sender: FDA-Public Use
  Company Number: US-CEPHALON-2011003305

PATIENT
  Age: 21 Year
  Sex: Female

DRUGS (2)
  1. NUVIGIL [Suspect]
     Indication: NARCOLEPSY
     Route: 048
     Dates: start: 20110302
  2. VITAMIN D [Concomitant]
     Dates: start: 20110501

REACTIONS (19)
  - CONVULSION [None]
  - LOSS OF CONSCIOUSNESS [None]
  - WEIGHT DECREASED [None]
  - HYPOAESTHESIA [None]
  - LYMPHADENOPATHY [None]
  - DYSPHAGIA [None]
  - DEPRESSED MOOD [None]
  - DIARRHOEA [None]
  - MYALGIA [None]
  - LIMB DISCOMFORT [None]
  - FEELING HOT [None]
  - NAUSEA [None]
  - DECREASED APPETITE [None]
  - ASTHENIA [None]
  - PARAESTHESIA [None]
  - ALOPECIA [None]
  - CONSTIPATION [None]
  - ARTHRALGIA [None]
  - DYSPNOEA [None]
